FAERS Safety Report 5303201-3 (Version None)
Quarter: 2007Q2

REPORT INFORMATION
  Report Type: 
  Country: None (occurrence: None)
  Receive Date: 20070420
  Receipt Date: 20070410
  Transmission Date: 20071010
  Serious: Yes (Hospitalization)
  Sender: FDA-Public Use
  Company Number: DE-ROCHE-492475

PATIENT
  Age: 36 Year
  Sex: Male
  Weight: 77 kg

DRUGS (2)
  1. PEG-INTERFERON ALFA 2A (RO 25-8310) [Suspect]
     Route: 058
     Dates: start: 20070316
  2. PARACETAMOL [Concomitant]
     Dates: start: 20070316

REACTIONS (1)
  - PANIC ATTACK [None]
